FAERS Safety Report 11189964 (Version 1)
Quarter: 2015Q2

REPORT INFORMATION
  Report Type: Spontaneous
  Country: US (occurrence: None)
  Receive Date: 20150601
  Receipt Date: 20150601
  Transmission Date: 20150821
  Serious: Yes (Hospitalization, Other)
  Sender: FDA-Public Use
  Company Number: 2013-000289

PATIENT
  Sex: Female
  Weight: 54.4 kg

DRUGS (38)
  1. OXYCONTIN [Concomitant]
     Active Substance: OXYCODONE HYDROCHLORIDE
  2. LORAZEPAM. [Concomitant]
     Active Substance: LORAZEPAM
  3. DIAZEPAM. [Concomitant]
     Active Substance: DIAZEPAM
  4. SIMVASTATIN. [Concomitant]
     Active Substance: SIMVASTATIN
  5. GINKO BILOBA (GINKGO BILOBA) [Concomitant]
  6. VITAMIN B12 [Concomitant]
     Active Substance: CYANOCOBALAMIN
  7. VITAMIN C [Concomitant]
     Active Substance: ASCORBIC ACID
  8. PREDNISONE. [Concomitant]
     Active Substance: PREDNISONE
  9. SULFASALAZINE. [Concomitant]
     Active Substance: SULFASALAZINE
  10. MINOXIDIL. [Concomitant]
     Active Substance: MINOXIDIL
  11. ATENOLOL. [Concomitant]
     Active Substance: ATENOLOL
  12. FISH OIL [Concomitant]
     Active Substance: FISH OIL
  13. PREMARIN [Concomitant]
     Active Substance: ESTROGENS, CONJUGATED
  14. FOLIC ACID. [Concomitant]
     Active Substance: FOLIC ACID
  15. GLUCOSAMINE + CHONDROITIN WITH MSM (CHONDROITIN SULFATE, GLUCOSAMINE, METHYLSULFONYLMETHANE) [Concomitant]
  16. FOSAMAX [Suspect]
     Active Substance: ALENDRONATE SODIUM
     Indication: OSTEOPOROSIS
     Route: 048
     Dates: start: 199501, end: 200511
  17. GABAPENTIN. [Concomitant]
     Active Substance: GABAPENTIN
  18. METHOTREXATE [Concomitant]
     Active Substance: METHOTREXATE
  19. CLONIDINE. [Concomitant]
     Active Substance: CLONIDINE
  20. MULTIVITAMIN (VITAMINS NOS) [Concomitant]
     Active Substance: VITAMINS
  21. ACTONEL [Suspect]
     Active Substance: RISEDRONATE SODIUM
     Indication: OSTEOPOROSIS
     Route: 048
     Dates: start: 200511, end: 201111
  22. FOSAMAX [Suspect]
     Active Substance: ALENDRONATE SODIUM
     Indication: OSTEOPOROSIS PROPHYLAXIS
     Route: 048
     Dates: start: 199501, end: 200511
  23. PROVERA (MEDROXYPROGESTERONE ACETATE) [Concomitant]
  24. ADVAIR DISKUS [Concomitant]
     Active Substance: FLUTICASONE PROPIONATE\SALMETEROL XINAFOATE
  25. COMBIVENT (IPRATROPIUM BROMIDE, SALBUTAMOL SULFATE) [Concomitant]
  26. ACTONEL [Suspect]
     Active Substance: RISEDRONATE SODIUM
     Indication: OSTEOPOROSIS PROPHYLAXIS
     Route: 048
     Dates: start: 200511, end: 201111
  27. METHOCARBAMOL. [Concomitant]
     Active Substance: METHOCARBAMOL
  28. CAPZASIN (CAPSAICIN) [Concomitant]
  29. LISINOPRIL. [Concomitant]
     Active Substance: LISINOPRIL
  30. HYDROCHLOROTHIAZIDE. [Concomitant]
     Active Substance: HYDROCHLOROTHIAZIDE
  31. ZINC [Concomitant]
     Active Substance: ZINC\ZINC CHLORIDE
  32. CALCIUM [Concomitant]
     Active Substance: CALCIUM
  33. ALENDRONATE (ALENDRONATE SODIUM) [Suspect]
     Active Substance: ALENDRONATE SODIUM
     Route: 048
     Dates: start: 2011, end: 2011
  34. LACTULOSE. [Concomitant]
     Active Substance: LACTULOSE
  35. LIDODERM [Concomitant]
     Active Substance: LIDOCAINE
  36. TRAMADOL [Concomitant]
     Active Substance: TRAMADOL
  37. DICLOFENAC [Concomitant]
     Active Substance: DICLOFENAC
  38. VITAMIN D (COLECALCIFEROL) [Concomitant]

REACTIONS (7)
  - Multiple fractures [None]
  - Pain in extremity [None]
  - Femur fracture [None]
  - Stress fracture [None]
  - Low turnover osteopathy [None]
  - Pathological fracture [None]
  - Bone disorder [None]

NARRATIVE: CASE EVENT DATE: 2011
